FAERS Safety Report 6065426-1 (Version None)
Quarter: 2009Q1

REPORT INFORMATION
  Report Type: 
  Country: None (occurrence: None)
  Receive Date: 20090204
  Receipt Date: 20090126
  Transmission Date: 20090719
  Serious: Yes (Death, Hospitalization)
  Sender: FDA-Public Use
  Company Number: US-PFIZER INC-2008093960

PATIENT
  Sex: Female

DRUGS (1)
  1. CELEBREX [Suspect]
     Indication: ANALGESIA
     Dosage: 200 MG, 2X/DAY
     Route: 048
     Dates: start: 20010101

REACTIONS (1)
  - CEREBRAL INFARCTION [None]
